FAERS Safety Report 7215942-1 (Version None)
Quarter: 2011Q1

REPORT INFORMATION
  Report Type: 
  Country: None (occurrence: None)
  Receive Date: 20110105
  Receipt Date: 20110105
  Transmission Date: 20110831
  Serious: Yes (Life-Threatening, Hospitalization)
  Sender: FDA-Public Use
  Company Number: None

PATIENT
  Sex: Male
  Weight: 70.7611 kg

DRUGS (3)
  1. OXALIPLATIN [Suspect]
     Indication: COLON CANCER METASTATIC
     Dosage: 160MG IV DRIP EVERY TWO WEEKS
     Route: 041
     Dates: start: 20100913
  2. LEUCOVARIN 100MG/VIAL [Suspect]
     Indication: COLON CANCER METASTATIC
     Dosage: 760 Q2 WEEKS IV DRIP
     Route: 041
     Dates: start: 20090309
  3. LEUCOVARIN 350MG/VIAL [Suspect]
     Indication: COLON CANCER METASTATIC
     Dosage: 760 IV DRIP EVERY TWO WEEKS
     Route: 041
     Dates: start: 20090309

REACTIONS (9)
  - DYSPNOEA [None]
  - ANXIETY [None]
  - OXYGEN SATURATION DECREASED [None]
  - DYSPHONIA [None]
  - DYSPHAGIA [None]
  - HYPERHIDROSIS [None]
  - SWELLING FACE [None]
  - ERYTHEMA [None]
  - NAUSEA [None]
